FAERS Safety Report 20602532 (Version 1)
Quarter: 2022Q1

REPORT INFORMATION
  Report Type: Spontaneous
  Country: FR (occurrence: FR)
  Receive Date: 20220316
  Receipt Date: 20220316
  Transmission Date: 20220424
  Serious: Yes (Hospitalization)
  Sender: FDA-Public Use
  Company Number: None

PATIENT
  Age: 83 Year
  Sex: Female
  Weight: 44 kg

DRUGS (3)
  1. ACYCLOVIR [Suspect]
     Active Substance: ACYCLOVIR
     Indication: Confusional state
     Route: 065
     Dates: start: 20220209, end: 20220210
  2. MIANSERIN HYDROCHLORIDE [Suspect]
     Active Substance: MIANSERIN HYDROCHLORIDE
     Indication: Depression
     Dosage: MIANSERINE HYDROCHLORIDE
     Route: 065
     Dates: start: 20220202, end: 20220208
  3. CEFOTAXIME [Suspect]
     Active Substance: CEFOTAXIME SODIUM
     Indication: Confusional state
     Dosage: CEFOTAXIME BASE
     Route: 065
     Dates: start: 20220209, end: 20220210

REACTIONS (2)
  - Confusional state [Recovered/Resolved]
  - Rash maculo-papular [Recovered/Resolved]

NARRATIVE: CASE EVENT DATE: 20220204
